FAERS Safety Report 8764994 (Version 6)
Quarter: 2012Q4

REPORT INFORMATION
  Report Type: 
  Country: GB (occurrence: GB)
  Receive Date: 20120903
  Receipt Date: 20121012
  Transmission Date: 20130627
  Serious: Yes (Disabling)
  Sender: FDA-Public Use
  Company Number: GB-009507513-1208GBR010175

PATIENT
  Age: 32 Year
  Sex: Male

DRUGS (4)
  1. MIRTAZAPINE [Suspect]
     Indication: ANXIETY
     Dosage: 15mg to 30mg unknown frequency
     Route: 048
  2. MIRTAZAPINE [Suspect]
     Indication: DEPRESSION
  3. MIRTAZAPINE [Suspect]
     Indication: INSOMNIA
  4. DIAZEPAM [Concomitant]
     Indication: PRODUCT USED FOR UNKNOWN INDICATION
     Dosage: UNK

REACTIONS (4)
  - Emotional distress [Recovered/Resolved]
  - Violence-related symptom [Recovered/Resolved]
  - Suicidal ideation [Recovered/Resolved]
  - Insomnia [Recovered/Resolved]
